FAERS Safety Report 7939690-5 (Version None)
Quarter: 2011Q4

REPORT INFORMATION
  Report Type: 
  Country: None (occurrence: None)
  Receive Date: 20111125
  Receipt Date: 20111115
  Transmission Date: 20120403
  Serious: Yes (Hospitalization)
  Sender: FDA-Public Use
  Company Number: PHHY2011KR100579

PATIENT
  Sex: Male
  Weight: 65.8 kg

DRUGS (1)
  1. TASIGNA [Suspect]
     Dosage: 400 MG, BID
     Route: 048
     Dates: start: 20080423, end: 20080502

REACTIONS (8)
  - C-REACTIVE PROTEIN INCREASED [None]
  - URINE COLOUR ABNORMAL [None]
  - PULMONARY OEDEMA [None]
  - DYSPEPSIA [None]
  - PNEUMONIA [None]
  - BILIRUBIN CONJUGATED INCREASED [None]
  - RED BLOOD CELL SEDIMENTATION RATE INCREASED [None]
  - FATIGUE [None]
